FAERS Safety Report 23265482 (Version 1)
Quarter: 2023Q4

REPORT INFORMATION
  Report Type: Spontaneous
  Country: US (occurrence: US)
  Receive Date: 20231206
  Receipt Date: 20231206
  Transmission Date: 20240110
  Serious: No
  Sender: FDA-Public Use
  Company Number: US-STERISCIENCE B.V.-2023-ST-001429

PATIENT

DRUGS (2)
  1. BUPIVACAINE [Suspect]
     Active Substance: BUPIVACAINE
     Indication: Local anaesthesia
     Dosage: 10 MILLILITER, RECEIVED POCKET AND XYPHOID INCISION SITES ALONG WITH INTERCOSTAL NERVE BLOCKADE OF T
     Route: 065
  2. LIDOCAINE [Suspect]
     Active Substance: LIDOCAINE
     Indication: Local anaesthesia
     Dosage: 20 MILLILITER, RECEIVED POCKET AND XYPHOID INCISION SITES ALONG WITH INTERCOSTAL NERVE BLOCKADE OF T
     Route: 065

REACTIONS (1)
  - Drug ineffective [Unknown]
